FAERS Safety Report 13713624 (Version 1)
Quarter: 2017Q3

REPORT INFORMATION
  Report Type: Spontaneous
  Country: US (occurrence: US)
  Receive Date: 20170704
  Receipt Date: 20170704
  Transmission Date: 20171127
  Serious: Yes (Hospitalization, Other)
  Sender: FDA-Public Use
  Company Number: US-IBIGEN-2016.02046

PATIENT
  Age: 63 Year
  Sex: Male

DRUGS (11)
  1. ACETYLSALICYLIC ACID [Concomitant]
     Active Substance: ASPIRIN
  2. LABETALOL [Concomitant]
     Active Substance: LABETALOL\LABETALOL HYDROCHLORIDE
  3. PHENYTOIN. [Concomitant]
     Active Substance: PHENYTOIN
  4. PRAVASTATIN. [Concomitant]
     Active Substance: PRAVASTATIN
  5. DARUNAVIR [Concomitant]
     Active Substance: DARUNAVIR
  6. PIPERACILLIN/TAZOBACTAM [Suspect]
     Active Substance: PIPERACILLIN SODIUM\TAZOBACTAM SODIUM
     Indication: CHOLECYSTITIS ACUTE
     Dosage: 2.25 G EVERY 6 HOUR(S)
     Route: 042
  7. FUROSEMIDE. [Concomitant]
     Active Substance: FUROSEMIDE
  8. NIFEDIPINE. [Concomitant]
     Active Substance: NIFEDIPINE
  9. EMTRICITABINE [Concomitant]
     Active Substance: EMTRICITABINE
  10. RALTEGRAVIR. [Concomitant]
     Active Substance: RALTEGRAVIR
  11. RITONAVIR. [Concomitant]
     Active Substance: RITONAVIR

REACTIONS (2)
  - Pyrexia [Recovered/Resolved]
  - Bradycardia [Recovered/Resolved]
